FAERS Safety Report 9267228 (Version 2)
Quarter: 2014Q3

REPORT INFORMATION
  Report Type: Report from Study
  Country: MX (occurrence: MX)
  Receive Date: 20130502
  Receipt Date: 20140721
  Transmission Date: 20150326
  Serious: Yes (Other)
  Sender: FDA-Public Use
  Company Number: PHHY2013MX043207

PATIENT
  Age: 47 Year
  Sex: Female

DRUGS (2)
  1. LIVIAL [Concomitant]
     Active Substance: TIBOLONE
     Indication: HORMONE REPLACEMENT THERAPY
     Dosage: 2.5 MG, DAILY
     Route: 048
     Dates: start: 20130226, end: 201309
  2. ONBREZ [Suspect]
     Active Substance: INDACATEROL
     Indication: CHRONIC OBSTRUCTIVE PULMONARY DISEASE
     Dosage: 150 UG, DAILY
     Route: 055
     Dates: start: 20130226, end: 201309

REACTIONS (3)
  - Swelling [Recovered/Resolved]
  - Chest pain [Recovered/Resolved]
  - Cold sweat [Recovered/Resolved]

NARRATIVE: CASE EVENT DATE: 201303
